FAERS Safety Report 16874870 (Version 1)
Quarter: 2019Q4

REPORT INFORMATION
  Report Type: Spontaneous
  Country: GB (occurrence: GB)
  Receive Date: 20191001
  Receipt Date: 20191001
  Transmission Date: 20200122
  Serious: Yes (Hospitalization, Disabling, Other)
  Sender: FDA-Public Use
  Company Number: GB-BAUSCH-BL-2019-055169

PATIENT
  Age: 79 Year
  Sex: Male

DRUGS (3)
  1. PREDNISOLONE. [Suspect]
     Active Substance: PREDNISOLONE
     Indication: PROSTATE CANCER
     Route: 048
     Dates: start: 20190703, end: 20190825
  2. ABIRATERONE ACETATE. [Suspect]
     Active Substance: ABIRATERONE ACETATE
     Indication: PROSTATE CANCER
     Route: 048
     Dates: start: 20190703, end: 20190825
  3. LANSOPRAZOL [Concomitant]
     Active Substance: LANSOPRAZOLE
     Indication: PRODUCT USED FOR UNKNOWN INDICATION

REACTIONS (9)
  - Peripheral swelling [Unknown]
  - Anxiety [Unknown]
  - Disorientation [Unknown]
  - Vomiting [Recovered/Resolved]
  - Haemoptysis [Unknown]
  - Nausea [Recovered/Resolved]
  - Confusional state [Unknown]
  - Overdose [Unknown]
  - Stress [Unknown]

NARRATIVE: CASE EVENT DATE: 20190705
